APPROVED DRUG PRODUCT: ROMAZICON
Active Ingredient: FLUMAZENIL
Strength: 1MG/10ML (0.1MG/ML) **Federal Register determination that product was not discontinued or withdrawn for safety or effectiveness reasons**
Dosage Form/Route: INJECTABLE;INJECTION
Application: N020073 | Product #001
Applicant: HOFFMANN LA ROCHE INC
Approved: Dec 20, 1991 | RLD: Yes | RS: No | Type: DISCN